FAERS Safety Report 18782928 (Version 1)
Quarter: 2021Q1

REPORT INFORMATION
  Report Type: Spontaneous
  Country: US (occurrence: US)
  Receive Date: 20210125
  Receipt Date: 20210125
  Transmission Date: 20210419
  Serious: Yes (Other)
  Sender: FDA-Public Use
  Company Number: US-HIKMA PHARMACEUTICALS USA INC.-US-H14001-20-03061

PATIENT
  Age: 53 Year
  Sex: Male

DRUGS (3)
  1. FLECAINIDE ACETATE. [Suspect]
     Active Substance: FLECAINIDE ACETATE
     Indication: SINUS ARRHYTHMIA
  2. TIKOSYN [Suspect]
     Active Substance: DOFETILIDE
     Indication: SINUS ARRHYTHMIA
     Route: 048
     Dates: start: 201610
  3. SOTALOL. [Suspect]
     Active Substance: SOTALOL
     Indication: SINUS ARRHYTHMIA
     Route: 048
     Dates: start: 20200611, end: 20200618

REACTIONS (3)
  - Atrial fibrillation [Unknown]
  - General physical condition abnormal [Unknown]
  - Adverse drug reaction [Unknown]

NARRATIVE: CASE EVENT DATE: 20200610
